FAERS Safety Report 7909666-2 (Version None)
Quarter: 2011Q4

REPORT INFORMATION
  Report Type: 
  Country: None (occurrence: None)
  Receive Date: 20111111
  Receipt Date: 20111101
  Transmission Date: 20120403
  Serious: Yes (Hospitalization)
  Sender: FDA-Public Use
  Company Number: JP-GLAXOSMITHKLINE-B0663022A

PATIENT
  Sex: Male

DRUGS (9)
  1. LAMICTAL [Suspect]
     Dosage: 25MG PER DAY
     Route: 048
     Dates: start: 20100508, end: 20100521
  2. LAMICTAL [Suspect]
     Dosage: 50MG PER DAY
     Route: 048
     Dates: start: 20100522, end: 20100616
  3. GABAPENTIN [Concomitant]
     Indication: EPILEPSY
     Dosage: 1600MG PER DAY
     Route: 048
  4. PHENOBARBITAL TAB [Concomitant]
     Indication: EPILEPSY
     Dosage: 210MG PER DAY
     Route: 048
  5. CLONAZEPAM [Concomitant]
     Indication: EPILEPSY
     Dosage: 2MG PER DAY
     Route: 048
  6. LAMICTAL [Suspect]
     Indication: EPILEPSY
     Dosage: 25MG ALTERNATE DAYS
     Route: 048
     Dates: start: 20100423, end: 20100507
  7. ZONISAMIDE [Concomitant]
     Indication: EPILEPSY
     Dosage: 450MG PER DAY
     Route: 048
  8. POTASSIUM BROMIDE [Concomitant]
  9. PHENYTOIN [Concomitant]

REACTIONS (7)
  - TONIC CLONIC MOVEMENTS [None]
  - PARTIAL SEIZURES [None]
  - ABNORMAL BEHAVIOUR [None]
  - INSOMNIA [None]
  - DEPRESSED LEVEL OF CONSCIOUSNESS [None]
  - STATUS EPILEPTICUS [None]
  - CONVULSION [None]
